FAERS Safety Report 6698608-6 (Version None)
Quarter: 2010Q2

REPORT INFORMATION
  Report Type: 
  Country: None (occurrence: None)
  Receive Date: 20100427
  Receipt Date: 20100416
  Transmission Date: 20101027
  Serious: Yes (Other)
  Sender: FDA-Public Use
  Company Number: JP-PFIZER INC-2010048218

PATIENT
  Age: 69 Year
  Sex: Female

DRUGS (3)
  1. LIPITOR [Suspect]
     Indication: HYPERLIPIDAEMIA
     Dosage: 5 MG, DAILY
     Route: 048
  2. CANDESARTAN CILEXETIL [Concomitant]
     Dosage: UNK
     Route: 048
  3. AMLODIN [Concomitant]
     Dosage: UNK
     Route: 048

REACTIONS (3)
  - CHROMATURIA [None]
  - MYALGIA [None]
  - URINE ODOUR ABNORMAL [None]
